FAERS Safety Report 6267795-6 (Version None)
Quarter: 2009Q3

REPORT INFORMATION
  Report Type: 
  Country: None (occurrence: None)
  Receive Date: 20090714
  Receipt Date: 20090630
  Transmission Date: 20100115
  Serious: Yes (Disabling, Other)
  Sender: FDA-Public Use
  Company Number: GB-MYLANLABS-2009S1011583

PATIENT
  Age: 62 Year
  Sex: Female
  Weight: 65.5 kg

DRUGS (2)
  1. CITALOPRAM HYDROBROMIDE [Suspect]
     Indication: DEPRESSION
     Dates: start: 20090411
  2. VOLTAREN [Concomitant]
     Indication: ARTHRITIS
     Route: 048
     Dates: start: 20090401

REACTIONS (3)
  - AMNESIA [None]
  - NAIL DISORDER [None]
  - NAIL GROWTH ABNORMAL [None]
